FAERS Safety Report 21909729 (Version 1)
Quarter: 2023Q1

REPORT INFORMATION
  Report Type: Report from Study
  Country: BR (occurrence: BR)
  Receive Date: 20230125
  Receipt Date: 20230125
  Transmission Date: 20230417
  Serious: Yes (Death, Hospitalization)
  Sender: FDA-Public Use
  Company Number: BR-BAYER-2023A002740

PATIENT
  Age: 23 Year
  Sex: Male

DRUGS (2)
  1. NEXAVAR [Suspect]
     Active Substance: SORAFENIB
     Indication: Hepatocellular carcinoma
     Dosage: 400 MG, BID
     Dates: start: 20220901
  2. SORAFENIB TOSYLATE [Suspect]
     Active Substance: SORAFENIB TOSYLATE
     Indication: Hepatocellular carcinoma
     Dosage: 200 MG, BID

REACTIONS (2)
  - Cerebrovascular accident [Fatal]
  - Renal infarct [Fatal]

NARRATIVE: CASE EVENT DATE: 20221222
